FAERS Safety Report 9014729 (Version 2)
Quarter: 2013Q1

REPORT INFORMATION
  Report Type: Spontaneous
  Country: US (occurrence: US)
  Receive Date: 20130115
  Receipt Date: 20130131
  Transmission Date: 20140127
  Serious: Yes (Other)
  Sender: FDA-Public Use
  Company Number: US-PFIZER INC-2013016908

PATIENT
  Age: 79 Year
  Sex: Female
  Weight: 70.3 kg

DRUGS (4)
  1. CADUET [Suspect]
     Indication: HYPERTENSION
     Dosage: [AMLODIPINE 10 MG]/[ATORVASTATIN 40 MG], 1X/DAY
     Route: 048
  2. CADUET [Suspect]
     Indication: BLOOD CHOLESTEROL INCREASED
  3. ZESTRIL [Concomitant]
     Indication: HYPERTENSION
     Dosage: 25 MG, UNK
  4. ZESTORETIC [Concomitant]
     Indication: HYPERTENSION
     Dosage: UNK

REACTIONS (2)
  - Cardiovascular disorder [Unknown]
  - Cardiac valve disease [Unknown]
